FAERS Safety Report 9164533 (Version 3)
Quarter: 2013Q3

REPORT INFORMATION
  Report Type: Report from Study
  Country: TR (occurrence: TR)
  Receive Date: 20130315
  Receipt Date: 20130902
  Transmission Date: 20140515
  Serious: No
  Sender: FDA-Public Use
  Company Number: PHHY2012TR074057

PATIENT
  Age: 45 Year
  Sex: Male

DRUGS (2)
  1. TASIGNA [Suspect]
     Indication: CHRONIC MYELOID LEUKAEMIA
     Dosage: 400 MG, DAILY
     Route: 048
     Dates: start: 2004
  2. TASIGNA [Suspect]
     Dosage: 400 MG, BID

REACTIONS (4)
  - Memory impairment [Not Recovered/Not Resolved]
  - Intentional drug misuse [Unknown]
  - Umbilical hernia [Not Recovered/Not Resolved]
  - Nausea [Not Recovered/Not Resolved]
